FAERS Safety Report 24082605 (Version 1)
Quarter: 2024Q3

REPORT INFORMATION
  Report Type: Spontaneous
  Country: GB (occurrence: GB)
  Receive Date: 20240712
  Receipt Date: 20240712
  Transmission Date: 20241017
  Serious: Yes (Other)
  Sender: AUROBINDO
  Company Number: GB-MHRA-MED-202405011611498020-FKRCQ

PATIENT
  Sex: Male

DRUGS (1)
  1. PERINDOPRIL [Suspect]
     Active Substance: PERINDOPRIL
     Indication: Hypertension
     Dosage: 2 MILLIGRAM, ONCE A DAY
     Route: 065

REACTIONS (2)
  - Oliguria [Recovered/Resolved]
  - Urinary retention [Recovered/Resolved]
